FAERS Safety Report 7759439-9 (Version None)
Quarter: 2011Q3

REPORT INFORMATION
  Report Type: 
  Country: None (occurrence: None)
  Receive Date: 20110915
  Receipt Date: 20110901
  Transmission Date: 20111222
  Serious: Yes (Hospitalization)
  Sender: FDA-Public Use
  Company Number: 2011-01010

PATIENT
  Age: 75 Year
  Sex: Male

DRUGS (6)
  1. SIMVASTATIN [Suspect]
     Indication: PROPHYLAXIS
     Dosage: UNKNOWN (UNKNOWN, UNK), UNKNOWN
  2. OMEPRAZOLE [Concomitant]
  3. OMEPRAZOLE [Concomitant]
  4. MAGNESIUM [Concomitant]
  5. OMEPRAZOLE SODIUM [Concomitant]
  6. OMEPRAZOLE SODIUM [Concomitant]

REACTIONS (4)
  - BODY TEMPERATURE DECREASED [None]
  - BRADYCARDIA [None]
  - PALPITATIONS [None]
  - EXTRASYSTOLES [None]
